FAERS Safety Report 11023717 (Version 2)
Quarter: 2015Q2

REPORT INFORMATION
  Report Type: Spontaneous
  Country: US (occurrence: US)
  Receive Date: 20150413
  Receipt Date: 20150525
  Transmission Date: 20150821
  Serious: Yes (Other)
  Sender: FDA-Public Use
  Company Number: US-JNJFOC-20121207813

PATIENT
  Age: 53 Year
  Sex: Male
  Weight: 64.86 kg

DRUGS (2)
  1. TESSALON [Concomitant]
     Active Substance: BENZONATATE
     Indication: UNEVALUABLE EVENT
     Route: 048
     Dates: start: 20121206, end: 20121207
  2. LEVAQUIN [Suspect]
     Active Substance: LEVOFLOXACIN
     Indication: PNEUMONIA
     Dosage: FOR 10 DAYS
     Route: 048
     Dates: start: 20121206, end: 20121206

REACTIONS (1)
  - Anaphylactic shock [Recovered/Resolved]

NARRATIVE: CASE EVENT DATE: 20121206
